FAERS Safety Report 6709514-2 (Version None)
Quarter: 2010Q2

REPORT INFORMATION
  Report Type: 
  Country: None (occurrence: None)
  Receive Date: 20100504
  Receipt Date: 20100422
  Transmission Date: 20101027
  Serious: Yes (Other)
  Sender: FDA-Public Use
  Company Number: BR-PFIZER INC-2010049003

PATIENT
  Age: 54 Year
  Sex: Female
  Weight: 59 kg

DRUGS (5)
  1. CHAMPIX [Suspect]
     Indication: TOBACCO USER
     Dosage: 0.5 MG, EVERY 24 HOURS
     Route: 048
     Dates: start: 20100409
  2. GARDENAL ^AVENTIS^ [Concomitant]
     Indication: TAENIASIS
     Dosage: UNK
     Dates: start: 20060101
  3. SIMVASTATIN [Concomitant]
     Indication: BLOOD CHOLESTEROL INCREASED
     Dosage: UNK
     Dates: start: 20070101
  4. PREMARIN [Concomitant]
     Indication: HORMONE LEVEL ABNORMAL
     Dosage: UNK
     Dates: start: 20070101
  5. BROMAZEPAM [Concomitant]
     Indication: SEDATIVE THERAPY
     Dosage: UNK
     Dates: start: 20000101

REACTIONS (1)
  - MEMORY IMPAIRMENT [None]
